FAERS Safety Report 20089694 (Version 1)
Quarter: 2021Q4

REPORT INFORMATION
  Report Type: Spontaneous
  Country: US (occurrence: US)
  Receive Date: 20211119
  Receipt Date: 20211119
  Transmission Date: 20220303
  Serious: Yes (Other)
  Sender: FDA-Public Use
  Company Number: US-SA-SAC20211117001348

PATIENT
  Sex: Male

DRUGS (2)
  1. ELOCTA [Suspect]
     Active Substance: EFMOROCTOCOG ALFA
     Indication: Factor VIII deficiency
     Dosage: 5400 (4860-5940) IU, Q5D
     Route: 042
     Dates: start: 20160817
  2. ELOCTA [Suspect]
     Active Substance: EFMOROCTOCOG ALFA
     Indication: Factor VIII deficiency
     Dosage: 5400 (4860-5940) IU, Q5D
     Route: 042
     Dates: start: 20160817

REACTIONS (1)
  - Haemorrhage [Recovered/Resolved]
